FAERS Safety Report 10801029 (Version 2)
Quarter: 2015Q1

REPORT INFORMATION
  Report Type: Spontaneous
  Country: US (occurrence: US)
  Receive Date: 20150216
  Receipt Date: 20150216
  Transmission Date: 20150721
  Serious: No
  Sender: FDA-Public Use
  Company Number: US-ALLERGAN-1422517US

PATIENT
  Sex: Male

DRUGS (2)
  1. MURO 128 [Concomitant]
     Active Substance: SODIUM CHLORIDE
  2. RESTASIS [Suspect]
     Active Substance: CYCLOSPORINE
     Indication: DRY EYE
     Dosage: UNK
     Dates: start: 20141022

REACTIONS (4)
  - Eye pain [Unknown]
  - Drug ineffective [Unknown]
  - Blepharitis [Unknown]
  - Eyelid oedema [Unknown]
